FAERS Safety Report 18159133 (Version 2)
Quarter: 2022Q1

REPORT INFORMATION
  Report Type: Spontaneous
  Country: US (occurrence: US)
  Receive Date: 20200817
  Receipt Date: 20220210
  Transmission Date: 20220423
  Serious: No
  Sender: FDA-Public Use
  Company Number: US-TAKEDA-2020TUS034831

PATIENT
  Age: 19 Year
  Sex: Female
  Weight: 99.8 kg

DRUGS (2)
  1. ALUNBRIG [Suspect]
     Active Substance: BRIGATINIB
     Indication: Neurofibromatosis
     Dosage: 180 MILLIGRAM, QD
     Route: 048
     Dates: start: 20211020
  2. ALUNBRIG [Suspect]
     Active Substance: BRIGATINIB
     Indication: Cranial nerve neoplasm benign

REACTIONS (2)
  - Blood creatinine increased [Unknown]
  - Off label use [Unknown]

NARRATIVE: CASE EVENT DATE: 20220108
